FAERS Safety Report 26188095 (Version 1)
Quarter: 2025Q4

REPORT INFORMATION
  Report Type: Spontaneous
  Country: US (occurrence: US)
  Receive Date: 20251222
  Receipt Date: 20251222
  Transmission Date: 20260117
  Serious: Yes (Hospitalization)
  Sender: MYLAN
  Company Number: US-MYLANLABS-2025M1107650

PATIENT
  Age: 23 Year
  Sex: Female

DRUGS (4)
  1. METHOTREXATE [Suspect]
     Active Substance: METHOTREXATE
     Indication: Sarcoma
     Dosage: 20 GRAM; HIGH DOSE
  2. LEUCOVORIN [Suspect]
     Active Substance: LEUCOVORIN\LEUCOVORIN CALCIUM
     Indication: Renal impairment
     Dosage: UNK
  3. SODIUM BICARBONATE [Suspect]
     Active Substance: SODIUM BICARBONATE
     Indication: Renal impairment
     Dosage: UNK
  4. GLUCARPIDASE [Suspect]
     Active Substance: GLUCARPIDASE
     Indication: Renal impairment
     Dosage: UNK

REACTIONS (3)
  - Renal impairment [Recovering/Resolving]
  - Nephropathy toxic [Recovering/Resolving]
  - Drug ineffective [Unknown]
